FAERS Safety Report 26084700 (Version 1)
Quarter: 2025Q4

REPORT INFORMATION
  Report Type: Spontaneous
  Country: EU (occurrence: EU)
  Receive Date: 20251124
  Receipt Date: 20251124
  Transmission Date: 20260117
  Serious: Yes (Hospitalization)
  Sender: JOHNSON AND JOHNSON
  Company Number: None

PATIENT
  Sex: Female
  Weight: 71 kg

DRUGS (1)
  1. XARELTO [Suspect]
     Active Substance: RIVAROXABAN
     Indication: Anticoagulant therapy
     Dosage: 20 MG, QD
     Route: 048
     Dates: start: 20171002, end: 20240313

REACTIONS (16)
  - Rib fracture [Recovering/Resolving]
  - Eczema [Recovering/Resolving]
  - Facet joint syndrome [Recovering/Resolving]
  - Back pain [Recovering/Resolving]
  - Spinal fracture [Recovering/Resolving]
  - Vitamin D deficiency [Recovering/Resolving]
  - Vitamin K deficiency [Recovering/Resolving]
  - Calcium deficiency [Recovering/Resolving]
  - Musculoskeletal stiffness [Recovering/Resolving]
  - Myalgia [Recovering/Resolving]
  - Arthralgia [Recovering/Resolving]
  - Fatigue [Recovering/Resolving]
  - Dyspnoea [Recovering/Resolving]
  - Osteoporosis [Recovering/Resolving]
  - Osteoporosis [Recovering/Resolving]
  - Kyphosis [Recovering/Resolving]

NARRATIVE: CASE EVENT DATE: 20230101
